FAERS Safety Report 8227221-4 (Version None)
Quarter: 2012Q1

REPORT INFORMATION
  Report Type: 
  Country: None (occurrence: None)
  Receive Date: 20120322
  Receipt Date: 20120309
  Transmission Date: 20120608
  Serious: Yes (Hospitalization)
  Sender: FDA-Public Use
  Company Number: AR-AMGEN-ARGSP2012016514

PATIENT
  Age: 71 Year
  Sex: Female

DRUGS (3)
  1. LOTRIAL                            /00574902/ [Concomitant]
     Dosage: UNK UNK, UNK
  2. ENBREL [Suspect]
     Dosage: UNK
     Dates: start: 20120115
  3. ENBREL [Suspect]
     Indication: RHEUMATOID ARTHRITIS
     Dosage: 50 MG, WEEKLY
     Route: 058
     Dates: start: 20111011, end: 20111130

REACTIONS (3)
  - APPLICATION SITE HYPERSENSITIVITY [None]
  - APPLICATION SITE ERYTHEMA [None]
  - BREAST MASS [None]
